FAERS Safety Report 20883020 (Version 1)
Quarter: 2022Q2

REPORT INFORMATION
  Report Type: Spontaneous
  Country: US (occurrence: None)
  Receive Date: 20220526
  Receipt Date: 20220526
  Transmission Date: 20220721
  Serious: Yes (Hospitalization)
  Sender: FDA-Public Use
  Company Number: None

PATIENT
  Age: 58 Year
  Sex: Male
  Weight: 80.1 kg

DRUGS (16)
  1. TEMOZOLOMIDE [Suspect]
     Active Substance: TEMOZOLOMIDE
     Indication: Brain neoplasm malignant
     Dosage: FREQUENCY : DAILY;?
     Route: 048
  2. TEMOZOLOMIDE [Suspect]
     Active Substance: TEMOZOLOMIDE
     Indication: Brain neoplasm malignant
     Dosage: FREQUENCY : DAILY;?
     Route: 048
  3. DEXAMETHASONE 2MG [Concomitant]
  4. OLMESARTAN [Concomitant]
     Active Substance: OLMESARTAN
  5. BACTRIM DS [Concomitant]
     Active Substance: SULFAMETHOXAZOLE\TRIMETHOPRIM
  6. ELIQUIS [Concomitant]
     Active Substance: APIXABAN
  7. NEBIVOLOL [Concomitant]
     Active Substance: NEBIVOLOL
  8. LEVETIRACETAM [Concomitant]
     Active Substance: LEVETIRACETAM
  9. COLACE [Concomitant]
     Active Substance: DOCUSATE SODIUM
  10. FAMOTIDINE [Concomitant]
     Active Substance: FAMOTIDINE
  11. FIORICET [Concomitant]
     Active Substance: ACETAMINOPHEN\BUTALBITAL\CAFFEINE
  12. ATORVASTATIN [Concomitant]
     Active Substance: ATORVASTATIN
  13. FESO4 325MG [Concomitant]
  14. SODIUM CHLORIDE 1G [Concomitant]
  15. THIAMINE 100MG [Concomitant]
  16. PROBIOTIC SUPLEMENT [Concomitant]

REACTIONS (1)
  - Neutropenia [None]

NARRATIVE: CASE EVENT DATE: 20220521
